FAERS Safety Report 16589719 (Version 1)
Quarter: 2019Q3

REPORT INFORMATION
  Report Type: Spontaneous
  Country: US (occurrence: US)
  Receive Date: 20190718
  Receipt Date: 20190718
  Transmission Date: 20191004
  Serious: No
  Sender: FDA-Public Use
  Company Number: US-SWEDISH ORPHAN BIOVITRUM-2019US0772

PATIENT
  Age: 76 Year
  Sex: Male

DRUGS (13)
  1. TYLENOL WITH CODEINE [Concomitant]
     Active Substance: ACETAMINOPHEN\CODEINE PHOSPHATE
  2. COJENTA [Concomitant]
  3. LOSARTAN. [Concomitant]
     Active Substance: LOSARTAN
  4. STATIN [Concomitant]
     Active Substance: UNSPECIFIED INGREDIENT
  5. METHOTREXATE. [Concomitant]
     Active Substance: METHOTREXATE
  6. AVASTIN [Concomitant]
     Active Substance: BEVACIZUMAB
  7. VITAMIN C [Suspect]
     Active Substance: ASCORBIC ACID
  8. PREDNISONE. [Concomitant]
     Active Substance: PREDNISONE
  9. ACYCLOVIR. [Concomitant]
     Active Substance: ACYCLOVIR
  10. VITAMIN D [Concomitant]
     Active Substance: VITAMIN D NOS
  11. BRILINTA [Concomitant]
     Active Substance: TICAGRELOR
  12. KINERET [Suspect]
     Active Substance: ANAKINRA
     Indication: STILL^S DISEASE
     Route: 058
     Dates: start: 20190205, end: 20190411
  13. NYSTATIN. [Concomitant]
     Active Substance: NYSTATIN
     Route: 048

REACTIONS (3)
  - Off label use [Unknown]
  - Diarrhoea [Unknown]
  - Vomiting [Unknown]

NARRATIVE: CASE EVENT DATE: 201902
